FAERS Safety Report 19201945 (Version 1)
Quarter: 2021Q2

REPORT INFORMATION
  Report Type: Spontaneous
  Country: NL (occurrence: NL)
  Receive Date: 20210430
  Receipt Date: 20210430
  Transmission Date: 20210717
  Serious: Yes (Hospitalization)
  Sender: FDA-Public Use
  Company Number: NVSC2021NL088801

PATIENT
  Age: 70 Year
  Sex: Male
  Weight: 73 kg

DRUGS (5)
  1. CLINDAMYCIN. [Suspect]
     Active Substance: CLINDAMYCIN
     Dosage: 600 MG (VOOR DE INGREEP 2 CAPSULES)
     Route: 065
     Dates: start: 20210407, end: 20210407
  2. VERAPAMIL [Concomitant]
     Active Substance: VERAPAMIL HYDROCHLORIDE
     Indication: PRODUCT USED FOR UNKNOWN INDICATION
     Dosage: UNK, TABLET MET GEREGULEERDE AFGIFTE, 120 MG (MILLIGRAM)
     Route: 065
  3. CLINDAMYCIN. [Suspect]
     Active Substance: CLINDAMYCIN
     Indication: DENTAL PROSTHESIS PLACEMENT
     Dosage: 300 MG, Q6H (DAARNA 4 X DAAGS 1 CAPSULE)
     Route: 065
     Dates: start: 202104
  4. CANDESARTAN. [Concomitant]
     Active Substance: CANDESARTAN
     Indication: PRODUCT USED FOR UNKNOWN INDICATION
     Dosage: 16 MG (TABLET, 16 MG (MILLIGRAM))
     Route: 065
  5. ADALIMUMAB [Concomitant]
     Active Substance: ADALIMUMAB
     Indication: PRODUCT USED FOR UNKNOWN INDICATION
     Dosage: UNK, INJECTIEVLOEISTOF, 100 MG/ML (MILLIGRAM PER MILLILITER)
     Route: 065

REACTIONS (5)
  - Erythema [Recovering/Resolving]
  - Pyrexia [Recovering/Resolving]
  - Skin exfoliation [Recovering/Resolving]
  - Peripheral swelling [Recovering/Resolving]
  - Rash [Recovering/Resolving]

NARRATIVE: CASE EVENT DATE: 20210407
